FAERS Safety Report 7859420-5 (Version None)
Quarter: 2011Q4

REPORT INFORMATION
  Report Type: 
  Country: None (occurrence: None)
  Receive Date: 20111021
  Receipt Date: 20111012
  Transmission Date: 20120403
  Serious: Yes (Hospitalization)
  Sender: FDA-Public Use
  Company Number: 2011030106

PATIENT
  Age: 51 Year
  Sex: Female
  Weight: 55.3388 kg

DRUGS (7)
  1. ALBUTEROL [Concomitant]
  2. HIZENTRA [Suspect]
     Indication: IMMUNODEFICIENCY COMMON VARIABLE
     Dosage: (SUBCUTANEOUS), (6 G 1X/WEEK, (30 ML) 2 SITES OVER 1 HOUR SUBCUTANEOUS), (SUBCUTANEOUS)
     Route: 058
     Dates: start: 20100903
  3. HIZENTRA [Suspect]
     Indication: IMMUNODEFICIENCY COMMON VARIABLE
     Dosage: (SUBCUTANEOUS), (6 G 1X/WEEK, (30 ML) 2 SITES OVER 1 HOUR SUBCUTANEOUS), (SUBCUTANEOUS)
     Route: 058
     Dates: start: 20110930
  4. FERROUS SULFATE TAB [Concomitant]
  5. SYMBICORT [Concomitant]
  6. HIZENTRA [Suspect]
  7. SINGULAIR [Concomitant]

REACTIONS (1)
  - MENORRHAGIA [None]
